FAERS Safety Report 5549483-4 (Version None)
Quarter: 2007Q4

REPORT INFORMATION
  Report Type: 
  Country: None (occurrence: None)
  Receive Date: 20071212
  Receipt Date: 20071204
  Transmission Date: 20080405
  Serious: Yes (Other)
  Sender: FDA-Public Use
  Company Number: PHBS2007JP20595

PATIENT
  Age: 64 Year
  Sex: Female

DRUGS (2)
  1. ZOMETA [Suspect]
     Indication: BREAST CANCER METASTATIC
     Route: 042
     Dates: start: 20070901
  2. XELODA [Concomitant]
     Dosage: 2400 MG, UNK
     Dates: start: 20070501

REACTIONS (1)
  - PERIOSTITIS [None]
